FAERS Safety Report 9232132 (Version 1)
Quarter: 2013Q2

REPORT INFORMATION
  Report Type: Spontaneous
  Country: US (occurrence: US)
  Receive Date: 20130415
  Receipt Date: 20130415
  Transmission Date: 20140414
  Serious: No
  Sender: FDA-Public Use
  Company Number: US-PFIZER INC-2013113647

PATIENT
  Age: 60 Year
  Sex: Female
  Weight: 136 kg

DRUGS (1)
  1. CELEBREX [Suspect]
     Indication: ARTHRALGIA
     Dosage: 200 MG, 2X/DAY

REACTIONS (4)
  - Hypersensitivity [Recovering/Resolving]
  - Bronchitis [Recovering/Resolving]
  - Migraine [Unknown]
  - Sinusitis [Unknown]
